FAERS Safety Report 5145465-5 (Version None)
Quarter: 2006Q4

REPORT INFORMATION
  Report Type: 
  Country: None (occurrence: None)
  Receive Date: 20061025
  Receipt Date: 20061023
  Transmission Date: 20070319
  Serious: Yes (Death)
  Sender: FDA-Public Use
  Company Number: 200610698

PATIENT
  Age: 73 Year
  Sex: Female

DRUGS (3)
  1. CARIMUNE [Suspect]
     Indication: PARAPROTEINAEMIA
     Dosage: 40 G DAILY IV; 36 G DAILY IV; 38 G DAILY IV
     Route: 042
     Dates: start: 20060907, end: 20060907
  2. CARIMUNE [Suspect]
  3. CARIMUNE [Suspect]

REACTIONS (4)
  - OVARIAN CANCER METASTATIC [None]
  - OXYGEN SATURATION DECREASED [None]
  - PNEUMONIA ASPIRATION [None]
  - RESPIRATORY DISTRESS [None]
